FAERS Safety Report 8199301-3 (Version None)
Quarter: 2012Q1

REPORT INFORMATION
  Report Type: 
  Country: None (occurrence: None)
  Receive Date: 20120309
  Receipt Date: 20120228
  Transmission Date: 20120608
  Serious: Yes (Death, Hospitalization)
  Sender: FDA-Public Use
  Company Number: JP-AMGEN-JPNCT2010005262

PATIENT
  Age: 69 Year
  Sex: Male
  Weight: 47 kg

DRUGS (3)
  1. PANITUMUMAB [Suspect]
     Indication: COLORECTAL CANCER
     Dosage: 6 MG/KG, Q2WK
     Route: 041
     Dates: start: 20100816, end: 20101026
  2. ALENDRONATE SODIUM [Concomitant]
     Indication: OSTEOPOROSIS
     Dosage: UNK
     Route: 048
  3. SHIOSOL [Suspect]
     Dosage: UNK
     Route: 042

REACTIONS (5)
  - COLORECTAL CANCER [None]
  - HYPOMAGNESAEMIA [None]
  - INTERSTITIAL LUNG DISEASE [None]
  - BLOOD CALCIUM DECREASED [None]
  - DERMATITIS ACNEIFORM [None]
